FAERS Safety Report 9391025 (Version 1)
Quarter: 2013Q3

REPORT INFORMATION
  Report Type: Spontaneous
  Country: IN (occurrence: None)
  Receive Date: 20130707
  Receipt Date: 20130707
  Transmission Date: 20140515
  Serious: Yes (Death)
  Sender: FDA-Public Use
  Company Number: KAD201306-000770

PATIENT
  Age: 45 Year
  Sex: Male

DRUGS (7)
  1. AMPHOTERICIN B [Suspect]
     Indication: CANDIDA INFECTION
     Route: 042
  2. CYCLOSPORINE [Suspect]
  3. AZATHIOPRINE [Suspect]
  4. LEVOFLOXACIN [Suspect]
     Dosage: 250 MG, ONCE, DAILY
  5. PIPERACILLIN / TAZOBACTAM [Suspect]
     Dosage: 2.25 G, THRICE DAILY
  6. METRONIDAZOLE [Suspect]
     Dosage: 500 MG, THRICE DAILY
  7. PREDNISOLONE [Suspect]

REACTIONS (2)
  - Haemoptysis [None]
  - Off label use [None]
